FAERS Safety Report 10428379 (Version 1)
Quarter: 2014Q3

REPORT INFORMATION
  Report Type: Spontaneous
  Country: US (occurrence: US)
  Receive Date: 20140903
  Receipt Date: 20140903
  Transmission Date: 20150326
  Serious: Yes (Other)
  Sender: FDA-Public Use
  Company Number: US-GLAXOSMITHKLINE-A1086715A

PATIENT
  Sex: Female

DRUGS (19)
  1. OXYCODONE [Concomitant]
     Active Substance: OXYCODONE
  2. PREVACID [Concomitant]
     Active Substance: LANSOPRAZOLE
  3. TUMS [Concomitant]
     Active Substance: CALCIUM CARBONATE
  4. MOUTHWASH [Concomitant]
  5. VALIUM [Concomitant]
     Active Substance: DIAZEPAM
  6. NYSTATIN. [Concomitant]
     Active Substance: NYSTATIN
  7. DIFLUCAN [Concomitant]
     Active Substance: FLUCONAZOLE
  8. VERAPAMIL [Concomitant]
     Active Substance: VERAPAMIL HYDROCHLORIDE
  9. MEPERIDINE [Concomitant]
     Active Substance: MEPERIDINE
  10. MORPHINE [Concomitant]
     Active Substance: MORPHINE
  11. VITAMINS [Concomitant]
     Active Substance: VITAMINS
  12. CARISOPRODOL. [Concomitant]
     Active Substance: CARISOPRODOL
  13. ALBUTEROL. [Suspect]
     Active Substance: ALBUTEROL
  14. MOBIC [Concomitant]
     Active Substance: MELOXICAM
  15. DEPO-TESTOSTERONE [Concomitant]
     Active Substance: TESTOSTERONE CYPIONATE
  16. PEPCID [Concomitant]
     Active Substance: FAMOTIDINE
  17. VENTOLIN [Suspect]
     Active Substance: ALBUTEROL SULFATE
     Indication: ASTHMA
     Dosage: 3PUFF FOUR TIMES PER DAY
     Route: 055
  18. PROAIR HFA [Concomitant]
     Active Substance: ALBUTEROL SULFATE
  19. REFRESH EYE DROPS [Concomitant]

REACTIONS (11)
  - Oropharyngeal pain [Unknown]
  - Dysphonia [Unknown]
  - Myringotomy [Unknown]
  - Throat cancer [Unknown]
  - Dysphagia [Unknown]
  - Ear pain [Unknown]
  - Tinnitus [Unknown]
  - Inner ear disorder [Unknown]
  - Treatment noncompliance [Unknown]
  - Oropharyngitis fungal [Unknown]
  - Unable to afford prescribed medication [Unknown]

NARRATIVE: CASE EVENT DATE: 2007
